FAERS Safety Report 16370392 (Version 2)
Quarter: 2019Q4

REPORT INFORMATION
  Report Type: Spontaneous
  Country: DE (occurrence: DE)
  Receive Date: 20190530
  Receipt Date: 20191018
  Transmission Date: 20200122
  Serious: Yes (Hospitalization, Other)
  Sender: FDA-Public Use
  Company Number: DE-ACCORD-129922

PATIENT
  Age: 56 Year
  Sex: Female

DRUGS (5)
  1. VIGANTOL [COLECALCIFEROL] [Suspect]
     Active Substance: CHOLECALCIFEROL
     Indication: OSTEOPOROSIS
     Dosage: 2000 IU, UNK
     Route: 048
  2. PANTOZOL [Suspect]
     Active Substance: PANTOPRAZOLE SODIUM
     Indication: PRODUCT USED FOR UNKNOWN INDICATION
     Dosage: 40 MG, QD
  3. LEVETIRACETAM. [Suspect]
     Active Substance: LEVETIRACETAM
     Indication: EPILEPSY
     Dosage: 250 MG, BID
     Route: 048
  4. METHADONE [Suspect]
     Active Substance: METHADONE HYDROCHLORIDE
     Indication: DRUG THERAPY
     Route: 048
     Dates: start: 2017
  5. DEXAMETHASONE. [Suspect]
     Active Substance: DEXAMETHASONE
     Indication: GLIOBLASTOMA MULTIFORME
     Route: 048
     Dates: start: 201803, end: 201804

REACTIONS (12)
  - Poor quality sleep [Unknown]
  - Dysphagia [Unknown]
  - Psychomotor retardation [Unknown]
  - White matter lesion [Unknown]
  - Fatigue [Unknown]
  - Hemiparesis [Unknown]
  - Femoral neck fracture [Unknown]
  - Foot deformity [Unknown]
  - Restlessness [Unknown]
  - Fall [Unknown]
  - General physical health deterioration [Unknown]
  - Disturbance in attention [Not Recovered/Not Resolved]

NARRATIVE: CASE EVENT DATE: 20180227
